FAERS Safety Report 10046014 (Version 2)
Quarter: 2014Q1

REPORT INFORMATION
  Report Type: Spontaneous
  Country: US (occurrence: US)
  Receive Date: 20140330
  Receipt Date: 20140330
  Transmission Date: 20141002
  Serious: Yes (Other)
  Sender: FDA-Public Use
  Company Number: US-GE HEALTHCARE MEDICAL DIAGNOSTICS-OSCN-PR-0805S-0249

PATIENT
  Age: 40 Year
  Sex: Female

DRUGS (3)
  1. OMNISCAN [Suspect]
     Indication: BACK PAIN
     Route: 042
     Dates: start: 20061130, end: 20061130
  2. OMNISCAN [Suspect]
     Indication: ABSCESS
     Route: 042
     Dates: start: 20061228, end: 20061228
  3. GADOLINIUM (UNSPECIFIED) [Suspect]
     Indication: DEAFNESS
     Route: 042
     Dates: start: 20011023, end: 20011023

REACTIONS (1)
  - Nephrogenic systemic fibrosis [Not Recovered/Not Resolved]
